FAERS Safety Report 12214323 (Version 2)
Quarter: 2016Q2

REPORT INFORMATION
  Report Type: Spontaneous
  Country: US (occurrence: US)
  Receive Date: 20160328
  Receipt Date: 20160404
  Transmission Date: 20160815
  Serious: Yes (Hospitalization)
  Sender: FDA-Public Use
  Company Number: US-DRREDDYS-USA/USA/16/0078289

PATIENT
  Age: 46 Year
  Sex: Male

DRUGS (9)
  1. LEVOFLOXACIN TABLETS [Suspect]
     Active Substance: LEVOFLOXACIN
     Indication: PROPHYLAXIS
     Route: 065
  2. ADRIAMYCIN [Suspect]
     Active Substance: DOXORUBICIN HYDROCHLORIDE
     Indication: CHEMOTHERAPY
     Dosage: COMPLETED A CYCLE
     Route: 065
  3. ACYCLOVIR. [Suspect]
     Active Substance: ACYCLOVIR
     Indication: PROPHYLAXIS
     Route: 065
  4. ETOPOSIDE. [Suspect]
     Active Substance: ETOPOSIDE
     Indication: CHEMOTHERAPY
     Dosage: COMPLETED A CYCLE
     Route: 065
  5. FLUCONAZOLE. [Suspect]
     Active Substance: FLUCONAZOLE
     Indication: PROPHYLAXIS
     Route: 065
  6. CYCLOPHOSPHAMIDE. [Suspect]
     Active Substance: CYCLOPHOSPHAMIDE
     Indication: CHEMOTHERAPY
     Dosage: COMPLETED A CYCLE
     Route: 065
  7. MESNA. [Suspect]
     Active Substance: MESNA
     Indication: CHEMOTHERAPY
     Dosage: COMPLETED A CYCLE
     Route: 065
  8. CISPLATIN. [Suspect]
     Active Substance: CISPLATIN
     Indication: CHEMOTHERAPY
     Dosage: COMPLETED A CYCLE
     Route: 065
  9. DEXAMETHASONE. [Suspect]
     Active Substance: DEXAMETHASONE
     Indication: CHEMOTHERAPY
     Dosage: COMPLETED A CYCLE
     Route: 065

REACTIONS (14)
  - Odynophagia [Unknown]
  - Pyrexia [Unknown]
  - Dysphagia [Unknown]
  - Chills [Unknown]
  - Drug resistance [Unknown]
  - Vomiting [Unknown]
  - Fusarium infection [Recovered/Resolved]
  - Mucosal inflammation [Unknown]
  - Hypophosphataemia [Unknown]
  - Tachypnoea [Unknown]
  - Pancytopenia [Unknown]
  - Hyponatraemia [Unknown]
  - C-reactive protein increased [Unknown]
  - Oedema peripheral [Unknown]
